FAERS Safety Report 4808126-5 (Version None)
Quarter: 2005Q4

REPORT INFORMATION
  Report Type: 
  Country: None (occurrence: None)
  Receive Date: 20051021
  Receipt Date: 20051013
  Transmission Date: 20060501
  Serious: Yes (Hospitalization)
  Sender: FDA-Public Use
  Company Number: SUS1-2005-00707

PATIENT
  Age: 12 Year
  Sex: Female
  Weight: 48.1 kg

DRUGS (2)
  1. METHYLPHENIDATE TRANSDERMAL SYSTEM (METHYLPHENIDATE (MTS) 37.5CM2) PAT [Suspect]
     Indication: ATTENTION DEFICIT/HYPERACTIVITY DISORDER
     Dosage: 37.5 CM2, TRANSDERMAL
     Route: 062
     Dates: start: 20050831, end: 20050915
  2. ALAVERT [Suspect]
     Indication: HYPERSENSITIVITY
     Dosage: 5 TABLETS IN ONE DAY, ORAL
     Route: 048
     Dates: start: 20050916, end: 20050916

REACTIONS (10)
  - AFFECT LABILITY [None]
  - AGGRESSION [None]
  - AGITATION [None]
  - DEPRESSED MOOD [None]
  - DEPRESSION [None]
  - DRUG DOSE OMISSION [None]
  - FLAT AFFECT [None]
  - MOOD SWINGS [None]
  - SOCIAL AVOIDANT BEHAVIOUR [None]
  - SUICIDE ATTEMPT [None]
